FAERS Safety Report 22393685 (Version 1)
Quarter: 2023Q2

REPORT INFORMATION
  Report Type: Spontaneous
  Country: CN (occurrence: CN)
  Receive Date: 20230601
  Receipt Date: 20230601
  Transmission Date: 20230722
  Serious: Yes (Other)
  Sender: FDA-Public Use
  Company Number: CN-PFIZER INC-202300204348

PATIENT
  Sex: Female

DRUGS (1)
  1. LORBRENA [Suspect]
     Active Substance: LORLATINIB
     Dosage: 100 MG, 1X/DAY
     Route: 048
     Dates: start: 20230421

REACTIONS (4)
  - Tongue paralysis [Unknown]
  - Dysarthria [Unknown]
  - Skin tightness [Not Recovered/Not Resolved]
  - Eating disorder [Unknown]

NARRATIVE: CASE EVENT DATE: 20230501
